FAERS Safety Report 5002302-7 (Version None)
Quarter: 2006Q2

REPORT INFORMATION
  Report Type: 
  Country: None (occurrence: None)
  Receive Date: 20060510
  Receipt Date: 20060503
  Transmission Date: 20061013
  Serious: Yes (Other)
  Sender: FDA-Public Use
  Company Number: 2006058908

PATIENT
  Age: 16 Year
  Sex: Female

DRUGS (1)
  1. BENADRYL [Suspect]
     Indication: HALLUCINATION
     Dosage: 25 TABLETS AT ONE TIME, ORAL
     Route: 048
     Dates: start: 20060101

REACTIONS (3)
  - DRUG ABUSER [None]
  - HALLUCINATION [None]
  - INCORRECT DOSE ADMINISTERED [None]
